FAERS Safety Report 16558904 (Version 1)
Quarter: 2019Q3

REPORT INFORMATION
  Report Type: Spontaneous
  Country: US (occurrence: US)
  Receive Date: 20190710
  Receipt Date: 20190710
  Transmission Date: 20191004
  Serious: No
  Sender: FDA-Public Use
  Company Number: None

PATIENT

DRUGS (1)
  1. PRALUENT [Suspect]
     Active Substance: ALIROCUMAB

REACTIONS (4)
  - Back pain [None]
  - Headache [None]
  - Heart rate increased [None]
  - Nausea [None]

NARRATIVE: CASE EVENT DATE: 20190709
